FAERS Safety Report 8453975 (Version 3)
Quarter: 2013Q3

REPORT INFORMATION
  Report Type: Report from Study
  Country: CA (occurrence: CA)
  Receive Date: 20120312
  Receipt Date: 20130710
  Transmission Date: 20140515
  Serious: Yes (Hospitalization, Other)
  Sender: FDA-Public Use
  Company Number: CA-UCBSA-052801

PATIENT
  Age: 53 Year
  Sex: Female
  Weight: 70 kg

DRUGS (9)
  1. CIMZIA [Suspect]
     Indication: RHEUMATOID ARTHRITIS
     Route: 058
     Dates: start: 20110609, end: 20120227
  2. FOLIC ACID [Concomitant]
     Indication: VITAMIN SUPPLEMENTATION
     Dosage: 6/7 DAYS/WEEK
     Route: 048
     Dates: start: 2009
  3. CALCIUM [Concomitant]
  4. PANTOLOC [Concomitant]
     Indication: ABDOMINAL DISCOMFORT
     Dosage: UNKNOWN DOSE AS NECESSARY
     Route: 048
  5. METHOTREXATE [Concomitant]
     Indication: RHEUMATOID ARTHRITIS
     Route: 058
     Dates: start: 20090825
  6. NAPROXEN [Concomitant]
     Indication: RHEUMATOID ARTHRITIS
     Route: 048
     Dates: start: 20090825
  7. COVERSYL [Concomitant]
     Indication: HYPERTENSION
     Route: 048
  8. ONE A DAY VITAMIN [Concomitant]
  9. VITAMIN D [Concomitant]

REACTIONS (2)
  - Cellulitis [Recovering/Resolving]
  - Herpes zoster [Recovering/Resolving]
